FAERS Safety Report 6235209-8 (Version None)
Quarter: 2009Q2

REPORT INFORMATION
  Report Type: 
  Country: None (occurrence: None)
  Receive Date: 20090615
  Receipt Date: 20090611
  Transmission Date: 20091009
  Serious: Yes (Other)
  Sender: FDA-Public Use
  Company Number: SP02244

PATIENT
  Age: 67 Year
  Sex: Female

DRUGS (3)
  1. MOVIPREP [Suspect]
     Indication: COLONOSCOPY
     Dosage: 1 LIT, ORAL
     Route: 048
     Dates: start: 20071002, end: 20071002
  2. LEVOTHYROXINE SODIUM [Concomitant]
  3. TRAVATAN (EYE DROPS) [Concomitant]

REACTIONS (2)
  - BLOOD PRESSURE INCREASED [None]
  - CONJUNCTIVAL HAEMORRHAGE [None]
